FAERS Safety Report 15905330 (Version 1)
Quarter: 2019Q1

REPORT INFORMATION
  Report Type: Report from Study
  Country: IT (occurrence: IT)
  Receive Date: 20190204
  Receipt Date: 20190204
  Transmission Date: 20190417
  Serious: Yes (Other)
  Sender: FDA-Public Use
  Company Number: IT-BAYER-2019-022228

PATIENT
  Age: 69 Year
  Sex: Male

DRUGS (2)
  1. ACETYLSALICYLIC ACID [Suspect]
     Active Substance: ASPIRIN
     Indication: PAIN
     Dosage: 325 MG, PRN
     Route: 048
     Dates: start: 20190106, end: 20190108
  2. KETOROLAC [Suspect]
     Active Substance: KETOROLAC\KETOROLAC TROMETHAMINE
     Indication: PAIN
     Dosage: 10 MG, PRN
     Route: 048
     Dates: start: 20190106, end: 20190108

REACTIONS (5)
  - Anaemia [Recovering/Resolving]
  - Melaena [Recovering/Resolving]
  - Rectal haemorrhage [Recovering/Resolving]
  - Gastric ulcer [Recovering/Resolving]
  - Overdose [None]

NARRATIVE: CASE EVENT DATE: 20190108
